FAERS Safety Report 7498695-1 (Version None)
Quarter: 2011Q2

REPORT INFORMATION
  Report Type: 
  Country: None (occurrence: None)
  Receive Date: 20110524
  Receipt Date: 20110509
  Transmission Date: 20111010
  Serious: Yes (Other)
  Sender: FDA-Public Use
  Company Number: DE-JNJFOC-20110411319

PATIENT
  Sex: Female
  Weight: 84 kg

DRUGS (3)
  1. DICLOFENAC SODIUM [Concomitant]
     Indication: OSTEOARTHRITIS
     Dates: end: 20101203
  2. TAPENTADOL [Suspect]
     Indication: PAIN
     Route: 065
     Dates: start: 20101203, end: 20101222
  3. PANTOPRAZOLE [Concomitant]
     Route: 065
     Dates: start: 20101203, end: 20101222

REACTIONS (2)
  - NAUSEA [None]
  - ABDOMINAL PAIN UPPER [None]
